FAERS Safety Report 17193138 (Version 1)
Quarter: 2019Q4

REPORT INFORMATION
  Report Type: Spontaneous
  Country: IT (occurrence: IT)
  Receive Date: 20191223
  Receipt Date: 20191223
  Transmission Date: 20200122
  Serious: Yes (Hospitalization)
  Sender: FDA-Public Use
  Company Number: IT-JNJFOC-20191201831

PATIENT
  Age: 63 Year
  Sex: Male
  Weight: 99 kg

DRUGS (2)
  1. TRANQUIRIT [Suspect]
     Active Substance: DIAZEPAM
     Indication: ALCOHOL ABUSE
     Route: 048
     Dates: start: 20191121
  2. HALDOL [Suspect]
     Active Substance: HALOPERIDOL
     Indication: PSYCHOTIC DISORDER
     Route: 048
     Dates: start: 20191121

REACTIONS (3)
  - Sedation [Not Recovered/Not Resolved]
  - Muscle rigidity [Not Recovered/Not Resolved]
  - Asthenia [Not Recovered/Not Resolved]

NARRATIVE: CASE EVENT DATE: 20191122
